FAERS Safety Report 18631131 (Version 1)
Quarter: 2020Q4

REPORT INFORMATION
  Report Type: Spontaneous
  Country: FR (occurrence: FR)
  Receive Date: 20201218
  Receipt Date: 20201218
  Transmission Date: 20210114
  Serious: Yes (Hospitalization, Other)
  Sender: FDA-Public Use
  Company Number: FR-AUROBINDO-AUR-APL-2020-061024

PATIENT
  Age: 49 Year
  Sex: Male
  Weight: 56 kg

DRUGS (4)
  1. THERALENE [Suspect]
     Active Substance: TRIMEPRAZINE
     Indication: SLEEP DISORDER THERAPY
     Dosage: 50 MILLIGRAM, ONCE A DAY
     Route: 048
     Dates: start: 20070222, end: 20200602
  2. LEPTICUR [Suspect]
     Active Substance: TROPATEPINE HYDROCHLORIDE
     Indication: EXTRAPYRAMIDAL DISORDER
     Dosage: 30 MILLIGRAM, ONCE A DAY
     Route: 048
     Dates: start: 20070222
  3. NOZINAN [Suspect]
     Active Substance: LEVOMEPROMAZINE
     Indication: PRODUCT USED FOR UNKNOWN INDICATION
     Dosage: 300 MILLIGRAM, ONCE A DAY
     Route: 048
     Dates: start: 20180401
  4. OLANZAPINE. [Suspect]
     Active Substance: OLANZAPINE
     Indication: PSYCHOTIC DISORDER
     Dosage: 500 MILLIGRAM, ONCE A DAY
     Route: 048
     Dates: start: 20100603, end: 20201014

REACTIONS (3)
  - Constipation [Recovered/Resolved with Sequelae]
  - Faecaloma [Recovered/Resolved with Sequelae]
  - Vomiting [Recovered/Resolved with Sequelae]

NARRATIVE: CASE EVENT DATE: 20200601
